FAERS Safety Report 18362069 (Version 2)
Quarter: 2021Q1

REPORT INFORMATION
  Report Type: Other
  Country: CA (occurrence: CA)
  Receive Date: 20201009
  Receipt Date: 20210209
  Transmission Date: 20210419
  Serious: Yes (Other)
  Sender: FDA-Public Use
  Company Number: CA-CELLTRION INC.-2020CA028544

PATIENT

DRUGS (12)
  1. ATORVASTATIN [Concomitant]
     Active Substance: ATORVASTATIN
  2. BENADRYL [Concomitant]
     Active Substance: DIPHENHYDRAMINE HYDROCHLORIDE
     Indication: PREMEDICATION
     Dosage: 50.0 MILLIGRAM
     Route: 048
  3. DILTIAZEM. [Concomitant]
     Active Substance: DILTIAZEM
  4. METFORMIN [Concomitant]
     Active Substance: METFORMIN HYDROCHLORIDE
     Route: 065
  5. NABILONE [Concomitant]
     Active Substance: NABILONE
  6. RITUXIMAB (UNKNOWN) [Suspect]
     Active Substance: RITUXIMAB
     Indication: SCLERODERMA
     Dosage: 500 MG, 1 EVERY 6 MONTHS
     Route: 042
  7. TELMISARTAN. [Concomitant]
     Active Substance: TELMISARTAN
  8. TYLENOL [Concomitant]
     Active Substance: ACETAMINOPHEN
     Indication: PREMEDICATION
     Dosage: 650.0 MILLIGRAM
     Route: 048
  9. GABAPENTIN. [Concomitant]
     Active Substance: GABAPENTIN
  10. ONDANSETRON [Concomitant]
     Active Substance: ONDANSETRON
  11. DIAMICRON [Concomitant]
     Active Substance: GLICLAZIDE
  12. RITUXIMAB (UNKNOWN) [Suspect]
     Active Substance: RITUXIMAB
     Indication: PULMONARY FIBROSIS

REACTIONS (4)
  - Product use in unapproved indication [Not Recovered/Not Resolved]
  - Blood pressure systolic abnormal [Not Recovered/Not Resolved]
  - Anaemia [Not Recovered/Not Resolved]
  - Off label use [Not Recovered/Not Resolved]
